FAERS Safety Report 8552852-1 (Version None)
Quarter: 2012Q3

REPORT INFORMATION
  Report Type: 
  Country: None (occurrence: None)
  Receive Date: 20120731
  Receipt Date: 20120726
  Transmission Date: 20120928
  Serious: Yes (Death, Hospitalization, Other)
  Sender: FDA-Public Use
  Company Number: PHHY2012CA032704

PATIENT
  Sex: Male

DRUGS (2)
  1. CLOZARIL [Suspect]
     Indication: AGITATION
     Dosage: 200 MG DAY
     Route: 048
     Dates: start: 20050413
  2. VALPROATE SODIUM [Concomitant]

REACTIONS (6)
  - MEGACOLON [None]
  - CARDIAC ARREST [None]
  - VOMITING [None]
  - CONSTIPATION [None]
  - FAECALOMA [None]
  - ABDOMINAL PAIN [None]
